FAERS Safety Report 5085782-0 (Version None)
Quarter: 2006Q3

REPORT INFORMATION
  Report Type: 
  Country: None (occurrence: None)
  Receive Date: 20060816
  Receipt Date: 20060808
  Transmission Date: 20061208
  Serious: Yes (Other)
  Sender: FDA-Public Use
  Company Number: 2006-08-0512

PATIENT
  Age: 72 Year
  Sex: Female

DRUGS (2)
  1. NASONEX [Suspect]
     Indication: HYPERSENSITIVITY
     Dosage: NASAL SPRAY
     Route: 045
     Dates: start: 20060101, end: 20060101
  2. NASONEX [Suspect]
     Indication: HYPERSENSITIVITY
     Dosage: NASAL SPRAY
     Route: 045
     Dates: start: 20060701

REACTIONS (6)
  - BLINDNESS UNILATERAL [None]
  - DIPLOPIA [None]
  - DIZZINESS [None]
  - GAIT DISTURBANCE [None]
  - HEADACHE [None]
  - VISUAL ACUITY REDUCED [None]
